FAERS Safety Report 15966429 (Version 2)
Quarter: 2019Q1

REPORT INFORMATION
  Report Type: Spontaneous
  Country: PL (occurrence: PL)
  Receive Date: 20190215
  Receipt Date: 20190315
  Transmission Date: 20190418
  Serious: Yes (Other)
  Sender: FDA-Public Use
  Company Number: PL-ROCHE-2262695

PATIENT
  Age: 84 Year
  Sex: Female

DRUGS (2)
  1. ESBRIET [Suspect]
     Active Substance: PIRFENIDONE
     Indication: IDIOPATHIC PULMONARY FIBROSIS
     Route: 048
     Dates: start: 20190117
  2. ESBRIET [Suspect]
     Active Substance: PIRFENIDONE
     Dosage: DOSE REDUCTION: 3X2TAB/DAY
     Route: 048
     Dates: start: 2019, end: 20190203

REACTIONS (7)
  - Burning sensation [Unknown]
  - Peripheral sensory neuropathy [Unknown]
  - Vomiting [Recovering/Resolving]
  - Paraesthesia [Unknown]
  - Guillain-Barre syndrome [Unknown]
  - Nausea [Recovering/Resolving]
  - Diarrhoea [Recovering/Resolving]

NARRATIVE: CASE EVENT DATE: 2019
